FAERS Safety Report 6298860-5 (Version None)
Quarter: 2009Q3

REPORT INFORMATION
  Report Type: 
  Country: None (occurrence: None)
  Receive Date: 20090806
  Receipt Date: 20090728
  Transmission Date: 20100115
  Serious: Yes (Hospitalization)
  Sender: FDA-Public Use
  Company Number: JP-JNJFOC-20090709774

PATIENT
  Sex: Female

DRUGS (8)
  1. BLINDED; GOLIMUMA [Suspect]
     Route: 058
  2. BLINDED; GOLIMUMA [Suspect]
     Indication: RHEUMATOID ARTHRITIS
     Route: 058
  3. PLACEBO [Suspect]
     Indication: RHEUMATOID ARTHRITIS
     Route: 058
  4. METHOTREXATE [Suspect]
     Indication: RHEUMATOID ARTHRITIS
     Route: 048
  5. PREDNISOLONE [Suspect]
     Indication: RHEUMATOID ARTHRITIS
     Route: 048
  6. MUCOSTA [Concomitant]
     Indication: GASTRITIS PROPHYLAXIS
     Route: 048
  7. FOLIAMIN [Concomitant]
     Indication: RHEUMATOID ARTHRITIS
     Route: 048
  8. FLUTIDE [Concomitant]
     Indication: ASTHMA
     Route: 055

REACTIONS (1)
  - URINARY TRACT INFECTION [None]
